FAERS Safety Report 5759849-5 (Version None)
Quarter: 2008Q2

REPORT INFORMATION
  Report Type: 
  Country: None (occurrence: None)
  Receive Date: 20080605
  Receipt Date: 20080527
  Transmission Date: 20081010
  Serious: Yes (Other)
  Sender: FDA-Public Use
  Company Number: PHHY2008JP09541

PATIENT
  Age: 68 Year
  Sex: Male

DRUGS (3)
  1. TERNELIN [Suspect]
     Dosage: UNK
     Route: 048
  2. VOLTAREN [Suspect]
     Dosage: UNK
     Route: 054
  3. AMARYL [Concomitant]
     Indication: DIABETES MELLITUS
     Route: 048

REACTIONS (3)
  - GLUCOSE URINE PRESENT [None]
  - GLYCOSYLATED HAEMOGLOBIN INCREASED [None]
  - PROTEINURIA [None]
